FAERS Safety Report 4897504-4 (Version None)
Quarter: 2005Q4

REPORT INFORMATION
  Report Type: 
  Country: None (occurrence: None)
  Receive Date: 20051223
  Receipt Date: 20050913
  Transmission Date: 20060501
  Serious: No
  Sender: FDA-Public Use
  Company Number: 05P-163-0310842-00

PATIENT
  Age: 56 Year
  Sex: Female
  Weight: 105 kg

DRUGS (2)
  1. HUMIRA [Suspect]
     Indication: RHEUMATOID ARTHRITIS
     Dosage: 40 MG, SUBCUTANEOUS
     Route: 058
  2. VENLAFAXINE HCL [Concomitant]

REACTIONS (2)
  - DYSPNOEA [None]
  - NASOPHARYNGITIS [None]
